FAERS Safety Report 17921174 (Version 2)
Quarter: 2020Q2

REPORT INFORMATION
  Report Type: Report from Study
  Country: SA (occurrence: SA)
  Receive Date: 20200622
  Receipt Date: 20200624
  Transmission Date: 20200714
  Serious: Yes (Hospitalization)
  Sender: FDA-Public Use
  Company Number: SA-CELLTRION INC.-2020SA017706

PATIENT

DRUGS (23)
  1. CIPROFLOXACIN LACTATE [Concomitant]
     Active Substance: CIPROFLOXACIN LACTATE
     Indication: ANTIBIOTIC THERAPY
  2. REMSIMA [Suspect]
     Active Substance: INFLIXIMAB
     Dosage: 322.5 MG
     Route: 042
     Dates: start: 20190115, end: 20190115
  3. HYDROCORTISONE SODIUM SUCCINATE [Concomitant]
     Active Substance: HYDROCORTISONE SODIUM SUCCINATE
     Dosage: 100 MG, STAT
     Route: 042
     Dates: start: 20190213, end: 20190213
  4. CIPROFLOXACIN LACTATE [Concomitant]
     Active Substance: CIPROFLOXACIN LACTATE
     Indication: ANTIBIOTIC PROPHYLAXIS
     Dosage: 200 MG, STAT
     Route: 042
     Dates: start: 20200107, end: 20200107
  5. REMSIMA [Suspect]
     Active Substance: INFLIXIMAB
     Dosage: 308.5 MG
     Route: 042
     Dates: start: 20200101, end: 202001
  6. PARACETAMOL [Concomitant]
     Active Substance: ACETAMINOPHEN
     Indication: ANALGESIC THERAPY
     Dosage: 1000 MG, STAT
     Route: 042
     Dates: start: 20191126, end: 20191126
  7. HYDROCORTISONE SODIUM SUCCINATE [Concomitant]
     Active Substance: HYDROCORTISONE SODIUM SUCCINATE
     Dosage: 100 MG, STAT
     Route: 042
     Dates: start: 20190115, end: 20190115
  8. HYDROCORTISONE SODIUM SUCCINATE [Concomitant]
     Active Substance: HYDROCORTISONE SODIUM SUCCINATE
     Dosage: 100 MG, STAT
     Route: 042
     Dates: start: 20190911, end: 20190911
  9. METRONIDAZOLE. [Concomitant]
     Active Substance: METRONIDAZOLE
     Indication: ANTIBIOTIC THERAPY
  10. REMSIMA [Suspect]
     Active Substance: INFLIXIMAB
     Dosage: 296.5 MG
     Route: 042
     Dates: start: 20181204, end: 20181204
  11. REMSIMA [Suspect]
     Active Substance: INFLIXIMAB
     Dosage: 322.5 MG
     Route: 042
     Dates: start: 20190213, end: 20190213
  12. REMSIMA [Suspect]
     Active Substance: INFLIXIMAB
     Dosage: 322.5 MG
     Route: 042
     Dates: start: 20190519, end: 20190519
  13. REMSIMA [Suspect]
     Active Substance: INFLIXIMAB
     Indication: CROHN^S DISEASE
     Dosage: 332.5 MG, EVERY 0, 2, 6 WEEKS
     Route: 042
     Dates: start: 20181110, end: 20181110
  14. REMSIMA [Suspect]
     Active Substance: INFLIXIMAB
     Dosage: 322.5 MG
     Route: 042
     Dates: start: 20190911, end: 20190911
  15. PARACETAMOL [Concomitant]
     Active Substance: ACETAMINOPHEN
     Dosage: 1000 MG, STAT
     Route: 042
     Dates: start: 20200107, end: 20200107
  16. HYDROCORTISONE SODIUM SUCCINATE [Concomitant]
     Active Substance: HYDROCORTISONE SODIUM SUCCINATE
     Indication: PREMEDICATION
     Dosage: 100 MG, STAT
     Route: 042
     Dates: start: 20181204, end: 20181204
  17. HYDROCORTISONE SODIUM SUCCINATE [Concomitant]
     Active Substance: HYDROCORTISONE SODIUM SUCCINATE
     Dosage: 100 MG, 50 MILLIGRAM/MILLILITERS, VIAL, STAT
     Route: 042
     Dates: start: 20190519, end: 20190519
  18. HYDROCORTISONE SODIUM SUCCINATE [Concomitant]
     Active Substance: HYDROCORTISONE SODIUM SUCCINATE
     Dosage: 100 MG, STAT
     Route: 042
     Dates: start: 20200101, end: 20200101
  19. METRONIDAZOLE. [Concomitant]
     Active Substance: METRONIDAZOLE
     Indication: ANTIBIOTIC PROPHYLAXIS
     Dosage: 500 MG, STAT
     Route: 042
     Dates: start: 20200107, end: 20200107
  20. OMEPRAZOLE. [Concomitant]
     Active Substance: OMEPRAZOLE
     Indication: PROPHYLAXIS
  21. PREDNISOLONE. [Concomitant]
     Active Substance: PREDNISOLONE
     Indication: INFLAMMATORY BOWEL DISEASE
     Dosage: 20 MG,1 IN 24 HR/Q24H
     Route: 048
     Dates: start: 20191125, end: 20191227
  22. PREDNISOLONE. [Concomitant]
     Active Substance: PREDNISOLONE
     Indication: ANTIINFLAMMATORY THERAPY
  23. OMEPRAZOLE. [Concomitant]
     Active Substance: OMEPRAZOLE
     Indication: GASTRIC PH DECREASED
     Dosage: 40 MG (40 MG,1 IN 1 D), ONCE DAILY
     Route: 042
     Dates: start: 20200107, end: 20200109

REACTIONS (4)
  - Abdominal tenderness [Recovered/Resolved]
  - Product use issue [Unknown]
  - Overdose [Unknown]
  - Abdominal pain [Recovered/Resolved]

NARRATIVE: CASE EVENT DATE: 20200106
